FAERS Safety Report 4694981-9 (Version None)
Quarter: 2005Q2

REPORT INFORMATION
  Report Type: 
  Country: None (occurrence: None)
  Receive Date: 20050617
  Receipt Date: 20041007
  Transmission Date: 20051028
  Serious: Yes (Other)
  Sender: FDA-Public Use
  Company Number: US-2004-032454

PATIENT
  Age: 72 Year
  Sex: Male
  Weight: 79.4 kg

DRUGS (7)
  1. FLUDARA [Suspect]
     Indication: NON-HODGKIN'S LYMPHOMA
     Dosage: 20 MG/D, FOR 5 DAYS, Q28 DAYS, INTRAVENOUS
     Route: 042
     Dates: start: 20040401, end: 20040801
  2. RITUXAN [Concomitant]
     Indication: NON-HODGKIN'S LYMPHOMA
     Route: 065
     Dates: start: 20040401, end: 20040801
  3. METOPROLOL [Concomitant]
  4. COZAAR [Concomitant]
  5. CALCIUM GLUCONATE [Concomitant]
  6. ACETYLSALICYLIC ACID SRT [Concomitant]
  7. GLUCOSAMINE [Concomitant]

REACTIONS (2)
  - INTERSTITIAL LUNG DISEASE [None]
  - PNEUMOCYSTIS JIROVECI PNEUMONIA [None]
